FAERS Safety Report 4872745-0 (Version None)
Quarter: 2006Q1

REPORT INFORMATION
  Report Type: 
  Country: None (occurrence: None)
  Receive Date: 20060103
  Receipt Date: 20051219
  Transmission Date: 20060701
  Serious: Yes (Other)
  Sender: FDA-Public Use
  Company Number: US200511000707

PATIENT
  Age: 45 Year
  Sex: Female

DRUGS (13)
  1. FORTEO [Suspect]
     Indication: OSTEOPOROSIS
     Dates: start: 20030101
  2. FORTEO [Concomitant]
  3. FAMVIR [Concomitant]
  4. LAMOTRIGINE [Concomitant]
  5. WARFARIN SODIUM [Concomitant]
  6. PREVACID [Concomitant]
  7. ZANAFLEX [Concomitant]
  8. PAXIL [Concomitant]
  9. KLONOPIN [Concomitant]
  10. TOPROL-XL [Concomitant]
  11. MIRTAZAPINE [Concomitant]
  12. SYNTHROID [Concomitant]
  13. FLUVASTATIN SODIUM (FLUVASTATIN SODIUM) [Concomitant]

REACTIONS (5)
  - BACK DISORDER [None]
  - BACK PAIN [None]
  - HERPES ZOSTER OPHTHALMIC [None]
  - MALAISE [None]
  - PHARMACEUTICAL PRODUCT COMPLAINT [None]
